FAERS Safety Report 8975726 (Version 1)
Quarter: 2012Q4

REPORT INFORMATION
  Report Type: 
  Country: US (occurrence: US)
  Receive Date: 20121219
  Receipt Date: 20121219
  Transmission Date: 20130627
  Serious: No
  Sender: FDA-Public Use
  Company Number: US-PFIZER INC-2012317004

PATIENT

DRUGS (1)
  1. ZOSYN [Suspect]
     Dosage: UNK

REACTIONS (1)
  - Chest pain [Unknown]
